FAERS Safety Report 9674793 (Version 1)
Quarter: 2013Q4

REPORT INFORMATION
  Report Type: Spontaneous
  Country: US (occurrence: None)
  Receive Date: 20131106
  Receipt Date: 20131106
  Transmission Date: 20140711
  Serious: No
  Sender: FDA-Public Use
  Company Number: None

PATIENT
  Age: 60 Year
  Sex: Female

DRUGS (1)
  1. RIBAVARIN [Suspect]
     Indication: CHRONIC HEPATITIS C
     Route: 048
     Dates: start: 20130924, end: 20131025

REACTIONS (6)
  - Rash [None]
  - Abdominal discomfort [None]
  - Nausea [None]
  - Chills [None]
  - Headache [None]
  - Drug intolerance [None]
